FAERS Safety Report 14175100 (Version 1)
Quarter: 2017Q4

REPORT INFORMATION
  Report Type: Report from Study
  Country: CA (occurrence: CA)
  Receive Date: 20171109
  Receipt Date: 20171109
  Transmission Date: 20180321
  Serious: Yes (Other)
  Sender: FDA-Public Use
  Company Number: CA-JNJFOC-20171103803

PATIENT
  Sex: Female
  Weight: 55.3 kg

DRUGS (1)
  1. REMICADE [Suspect]
     Active Substance: INFLIXIMAB
     Indication: COLITIS ULCERATIVE
     Dosage: STRENGTH = 100 MG MG
     Route: 042

REACTIONS (3)
  - Off label use [Unknown]
  - Lupus-like syndrome [Unknown]
  - Product use issue [Unknown]
